FAERS Safety Report 9294093 (Version 1)
Quarter: 2013Q1

REPORT INFORMATION
  Report Type: Spontaneous
  Country: US (occurrence: None)
  Receive Date: 20121227
  Receipt Date: 20121227
  Transmission Date: 20140127
  Serious: Yes (Hospitalization)
  Sender: FDA-Public Use
  Company Number: PHEH2011US012716

PATIENT
  Age: 26 Year
  Sex: Female
  Weight: 55.3 kg

DRUGS (1)
  1. EXJADE (*CGP 72670*) UNKNOWN [Suspect]
     Route: 048
     Dates: start: 20110810, end: 20111201

REACTIONS (2)
  - Abdominal pain [None]
  - Hepatic function abnormal [None]
